FAERS Safety Report 7917323-1 (Version None)
Quarter: 2011Q4

REPORT INFORMATION
  Report Type: 
  Country: None (occurrence: None)
  Receive Date: 20111116
  Receipt Date: 20111108
  Transmission Date: 20120403
  Serious: Yes (Hospitalization, Other)
  Sender: FDA-Public Use
  Company Number: PHEH2004US08275

PATIENT
  Sex: Female

DRUGS (44)
  1. COUMADIN [Concomitant]
     Dosage: 4 MG ,4 DAYS WEEKLY
  2. EVISTA [Concomitant]
     Dosage: 60 MG, QD
  3. TRAZODONE HCL [Concomitant]
     Dosage: 100 MG, PRN, HS
  4. OXYFAST [Concomitant]
  5. TYLENOL W/ CODEINE NO. 3 [Concomitant]
  6. BIAXIN [Concomitant]
  7. NEXIUM [Concomitant]
     Dosage: 20 MG, QD
  8. CELEXA [Concomitant]
     Dosage: 40 MG, QD
  9. MIACALCIN [Concomitant]
     Dosage: UNK, UNK
  10. VIOXX [Concomitant]
     Indication: MYALGIA
     Dosage: 25 MG, UNK
  11. COMBIVENT [Concomitant]
  12. FAMVIR [Concomitant]
     Indication: HERPES VIRUS INFECTION
     Dosage: 250 MG, QD
  13. NITROFURANTOIN [Concomitant]
     Dosage: 50 MG, QD
  14. GEMZAR [Concomitant]
     Indication: OVARIAN CANCER
     Dosage: UNK, UNK
     Dates: end: 20020101
  15. COMPAZINE [Concomitant]
     Indication: NAUSEA
     Dosage: 10 MG, UNK
  16. ALPRAZOLAM [Concomitant]
  17. CISPLATIN [Concomitant]
  18. TESSALON [Concomitant]
  19. ZOMETA [Suspect]
     Indication: OSTEOPOROSIS
     Dosage: 4 MG MONTHLY
     Route: 042
     Dates: start: 20020113, end: 20040619
  20. VICODIN [Concomitant]
  21. HEXALEN [Concomitant]
     Indication: OVARIAN CANCER
     Dosage: UNK, DAILY
     Dates: end: 20041110
  22. FERROUS SULFATE TAB [Concomitant]
     Dosage: 324 MG, BID
  23. CEFTIN [Concomitant]
  24. CITALOPRAM HYDROBROMIDE [Concomitant]
  25. PRILOSEC [Concomitant]
  26. OXYCONTIN [Concomitant]
  27. PAXIL [Concomitant]
     Dosage: UNK, UNK
  28. CARBOPLATIN [Concomitant]
     Indication: OVARIAN CANCER
     Dosage: UNK, UNK
  29. TAXOL [Concomitant]
     Indication: OVARIAN CANCER
     Dosage: UNK, UNK
  30. LOVENOX [Concomitant]
     Dosage: 100 MG, QD
     Route: 058
  31. KLONOPIN [Concomitant]
  32. CLONAZEPAM [Concomitant]
     Indication: INSOMNIA
     Dosage: .5 MG, PRN, HS
  33. TAXANES [Concomitant]
  34. TOPOTECAN [Concomitant]
     Dosage: UNK, UNK
     Dates: end: 20031112
  35. VITAMIN K TAB [Concomitant]
  36. POTASSIUM CHLORIDE [Concomitant]
  37. NAVELBINE [Concomitant]
  38. PRILOSEC [Concomitant]
     Dosage: UNK, UNK
  39. DOXIL [Concomitant]
     Indication: OVARIAN CANCER
     Dosage: UNK, UNK
  40. METHYLPHENIDATE [Concomitant]
     Dosage: 5 MG, TID
  41. FLOVENT [Concomitant]
  42. FOSAMAX [Suspect]
     Route: 048
  43. DETROL [Concomitant]
     Dosage: 4 MG, QD
  44. CYTOXAN [Concomitant]

REACTIONS (62)
  - GASTRIC POLYPS [None]
  - GASTROOESOPHAGEAL REFLUX DISEASE [None]
  - HIATUS HERNIA [None]
  - ARTHRALGIA [None]
  - PYREXIA [None]
  - CONTUSION [None]
  - MITRAL VALVE INCOMPETENCE [None]
  - CENTRAL VENOUS PRESSURE INCREASED [None]
  - JAUNDICE CHOLESTATIC [None]
  - SWELLING [None]
  - INJURY [None]
  - ANXIETY [None]
  - LYMPHADENOPATHY [None]
  - METASTASES TO THYROID [None]
  - ACQUIRED OESOPHAGEAL WEB [None]
  - BACK PAIN [None]
  - ANAEMIA [None]
  - RENAL CYST [None]
  - HEPATIC STEATOSIS [None]
  - COUGH [None]
  - OSTEONECROSIS OF JAW [None]
  - DYSPNOEA [None]
  - METASTASES TO LIVER [None]
  - HYPERLIPIDAEMIA [None]
  - MYALGIA [None]
  - APNOEA [None]
  - OSTEOMYELITIS [None]
  - BILE DUCT OBSTRUCTION [None]
  - NAUSEA [None]
  - THROMBOCYTOPENIA [None]
  - INCONTINENCE [None]
  - BRONCHITIS [None]
  - BONE SCAN ABNORMAL [None]
  - ABDOMINAL DISTENSION [None]
  - FLANK PAIN [None]
  - ASTHENIA [None]
  - BEDRIDDEN [None]
  - TOOTHACHE [None]
  - PAIN [None]
  - NEOPLASM MALIGNANT [None]
  - OVARIAN CANCER METASTATIC [None]
  - LIVER DISORDER [None]
  - ATELECTASIS [None]
  - DIVERTICULUM [None]
  - MYOCARDIAL INFARCTION [None]
  - HAEMATURIA [None]
  - DIARRHOEA [None]
  - OSTEOPOROSIS [None]
  - SINUS DISORDER [None]
  - TOOTH INFECTION [None]
  - SINUS TACHYCARDIA [None]
  - CYSTITIS [None]
  - URGE INCONTINENCE [None]
  - HYDRONEPHROSIS [None]
  - FALL [None]
  - LEFT VENTRICULAR HYPERTROPHY [None]
  - LEFT ATRIAL DILATATION [None]
  - JAUNDICE [None]
  - CONFUSIONAL STATE [None]
  - DYSPNOEA EXERTIONAL [None]
  - PLEURAL EFFUSION [None]
  - PORTAL VEIN OCCLUSION [None]
